FAERS Safety Report 6012340-3 (Version None)
Quarter: 2008Q4

REPORT INFORMATION
  Report Type: 
  Country: None (occurrence: None)
  Receive Date: 20081218
  Receipt Date: 20080821
  Transmission Date: 20090506
  Serious: No
  Sender: FDA-Public Use
  Company Number: US-ASTRAZENECA-2008UW17207

PATIENT
  Age: 51 Year
  Sex: Female
  Weight: 117.9 kg

DRUGS (10)
  1. SYMBICORT [Suspect]
     Indication: CHRONIC OBSTRUCTIVE PULMONARY DISEASE
     Dosage: 80/4.5 MCG 2 PUFFS EVERY 12 HOURS
     Route: 055
     Dates: start: 20080814
  2. NORVASC [Concomitant]
  3. SYNTHROID [Concomitant]
  4. XOPENEX [Concomitant]
  5. CELEXA [Concomitant]
  6. XANAX [Concomitant]
  7. LIPITOR [Concomitant]
  8. TRICOR [Concomitant]
  9. MULTI-VITAMIN [Concomitant]
  10. NEXIUM [Concomitant]

REACTIONS (2)
  - FATIGUE [None]
  - HEADACHE [None]
